FAERS Safety Report 14688569 (Version 1)
Quarter: 2018Q1

REPORT INFORMATION
  Report Type: Other
  Country: FR (occurrence: FR)
  Receive Date: 20180328
  Receipt Date: 20180328
  Transmission Date: 20180509
  Serious: Yes (Other)
  Sender: FDA-Public Use
  Company Number: FR-ASTELLAS-2018US014267

PATIENT
  Age: 25 Year
  Sex: Female

DRUGS (4)
  1. IMUREL                             /00001501/ [Concomitant]
     Active Substance: AZATHIOPRINE SODIUM
     Indication: LIVER TRANSPLANT
     Route: 048
     Dates: start: 2008
  2. CALCIDOSE                          /00944201/ [Concomitant]
     Active Substance: CALCIUM CARBONATE\CHOLECALCIFEROL
     Indication: PRODUCT USED FOR UNKNOWN INDICATION
     Route: 065
     Dates: start: 2008
  3. PROGRAF [Suspect]
     Active Substance: TACROLIMUS\TACROLIMUS ANHYDROUS
     Indication: LIVER TRANSPLANT
     Route: 048
     Dates: start: 2008, end: 20180123
  4. DEDROGYL [Concomitant]
     Active Substance: CALCIFEDIOL
     Indication: PRODUCT USED FOR UNKNOWN INDICATION
     Dosage: UNK UNK, UNKNOWN FREQ.
     Route: 065

REACTIONS (9)
  - Pre-eclampsia [Unknown]
  - Pancytopenia [Recovered/Resolved]
  - Inappropriate schedule of drug administration [Unknown]
  - Type 1 diabetes mellitus [Unknown]
  - Immunosuppressant drug level increased [Recovered/Resolved]
  - Exposure during pregnancy [Unknown]
  - Gestational diabetes [Unknown]
  - Herpes zoster [Unknown]
  - Transplant rejection [Unknown]

NARRATIVE: CASE EVENT DATE: 2012
